FAERS Safety Report 17717632 (Version 2)
Quarter: 2020Q2

REPORT INFORMATION
  Report Type: Report from Study
  Country: None (occurrence: BR)
  Receive Date: 20200428
  Receipt Date: 20200529
  Transmission Date: 20200714
  Serious: Yes (Death, Hospitalization, Other)
  Sender: FDA-Public Use
  Company Number: BR-ABBVIE-20K-020-3379337-00

PATIENT
  Age: 76 Year
  Sex: Female
  Weight: 58 kg

DRUGS (2)
  1. HUMIRA [Suspect]
     Active Substance: ADALIMUMAB
     Indication: RHEUMATOID ARTHRITIS
     Route: 058
     Dates: start: 20190918
  2. REUQUINOL [Concomitant]
     Active Substance: HYDROXYCHLOROQUINE SULFATE
     Indication: RHEUMATOID ARTHRITIS

REACTIONS (6)
  - Dementia [Not Recovered/Not Resolved]
  - Arthritis bacterial [Unknown]
  - Synovial cyst [Not Recovered/Not Resolved]
  - Arthralgia [Recovered/Resolved]
  - Immunodeficiency [Unknown]
  - Death [Fatal]

NARRATIVE: CASE EVENT DATE: 2020
